FAERS Safety Report 8374585-7 (Version None)
Quarter: 2012Q2

REPORT INFORMATION
  Report Type: 
  Country: None (occurrence: None)
  Receive Date: 20120521
  Receipt Date: 20120508
  Transmission Date: 20120825
  Serious: Yes (Other)
  Sender: FDA-Public Use
  Company Number: HU-JNJFOC-20120507259

PATIENT
  Age: 33 Year
  Sex: Female
  Weight: 74 kg

DRUGS (9)
  1. REMICADE [Suspect]
     Route: 042
     Dates: start: 20081229, end: 20090414
  2. REMICADE [Suspect]
     Route: 042
     Dates: start: 20081229, end: 20090414
  3. INDOMETHACIN [Concomitant]
     Indication: ANKYLOSING SPONDYLITIS
     Route: 048
     Dates: start: 20080721
  4. KALIUM-R [Concomitant]
     Indication: COLITIS ULCERATIVE
     Dosage: 2X1
     Route: 048
     Dates: start: 20080827, end: 20090414
  5. METHYLPREDNISOLONE [Concomitant]
     Indication: COLITIS ULCERATIVE
     Route: 048
     Dates: start: 20080827, end: 20090414
  6. REMICADE [Suspect]
     Indication: MUSCULOSKELETAL PAIN
     Route: 042
  7. AFLAMIN [Concomitant]
     Indication: ANKYLOSING SPONDYLITIS
     Route: 048
     Dates: start: 20080620, end: 20080721
  8. REMICADE [Suspect]
     Indication: ANKYLOSING SPONDYLITIS
     Route: 042
  9. MESALAZIN [Concomitant]
     Indication: COLITIS ULCERATIVE
     Dosage: 3 X2 COFFEE SPOONS
     Route: 048
     Dates: start: 20080827, end: 20090414

REACTIONS (2)
  - CAESAREAN SECTION [None]
  - MATERNAL EXPOSURE DURING PREGNANCY [None]
